FAERS Safety Report 7138500-6 (Version None)
Quarter: 2010Q4

REPORT INFORMATION
  Report Type: 
  Country: None (occurrence: None)
  Receive Date: 20101202
  Receipt Date: 20101202
  Transmission Date: 20110411
  Serious: No
  Sender: FDA-Public Use
  Company Number: None

PATIENT
  Sex: Female

DRUGS (1)
  1. OXYCONTIN [Suspect]
     Indication: PAIN
     Dosage: 40MG Q8? PO
     Route: 048
     Dates: start: 20101101, end: 20101201

REACTIONS (3)
  - FEELING ABNORMAL [None]
  - PRODUCT QUALITY ISSUE [None]
  - SOMNOLENCE [None]
